FAERS Safety Report 5265951-7 (Version None)
Quarter: 2007Q1

REPORT INFORMATION
  Report Type: 
  Country: None (occurrence: None)
  Receive Date: 20070313
  Receipt Date: 20070313
  Transmission Date: 20070707
  Serious: No
  Sender: FDA-Public Use
  Company Number: None

PATIENT
  Sex: Male
  Weight: 81.6475 kg

DRUGS (1)
  1. ZICAM NO DRIP LIQUID NASAL GEL EXTREME CONGESTION RELIEF INC MATRIXX I [Suspect]
     Indication: RHINITIS
     Dosage: 1 TO 2 SPRAYS 3 X''S DAILY NASAL
     Route: 045

REACTIONS (1)
  - ANOSMIA [None]
